FAERS Safety Report 17857460 (Version 2)
Quarter: 2020Q4

REPORT INFORMATION
  Report Type: Report from Study
  Country: DE (occurrence: DE)
  Receive Date: 20200603
  Receipt Date: 20201123
  Transmission Date: 20210113
  Serious: Yes (Hospitalization)
  Sender: FDA-Public Use
  Company Number: DE-UCBSA-2020022374

PATIENT
  Sex: Female

DRUGS (12)
  1. MTX [METHOTREXATE] [Suspect]
     Active Substance: METHOTREXATE SODIUM
     Indication: PRODUCT USED FOR UNKNOWN INDICATION
     Dosage: 17.5 MILLIGRAM, WEEKLY (QW)
  2. APIXABAN [Concomitant]
     Active Substance: APIXABAN
  3. COLECALCIFEROL [Concomitant]
     Active Substance: CHOLECALCIFEROL
  4. BECLOMETASONE;FORMOTEROL [Concomitant]
     Active Substance: BECLOMETHASONE\FORMOTEROL
  5. COLCHICUM [Concomitant]
     Active Substance: COLCHICINE
  6. FOLIC ACID. [Concomitant]
     Active Substance: FOLIC ACID
  7. TRAMADOL. [Concomitant]
     Active Substance: TRAMADOL
  8. BISOPROLOL [Concomitant]
     Active Substance: BISOPROLOL
  9. CERTOLIZUMAB PEGOL RA [Suspect]
     Active Substance: CERTOLIZUMAB PEGOL
     Indication: RHEUMATOID ARTHRITIS
     Dosage: 200 MILLIGRAM, EV 2 WEEKS(QOW)
     Dates: end: 20200113
  10. PREDNISOLONE. [Concomitant]
     Active Substance: PREDNISOLONE
  11. MACROGOL [Concomitant]
     Active Substance: POLYETHYLENE GLYCOLS
  12. PANTOPRAZOLE [Concomitant]
     Active Substance: PANTOPRAZOLE

REACTIONS (5)
  - Osteoarthritis [Unknown]
  - Hypermobility syndrome [Unknown]
  - Hypercholesterolaemia [Unknown]
  - Chondrocalcinosis [Not Recovered/Not Resolved]
  - Carpal tunnel syndrome [Unknown]

NARRATIVE: CASE EVENT DATE: 20200102
